APPROVED DRUG PRODUCT: READI-CAT 2 SMOOTHIE
Active Ingredient: BARIUM SULFATE
Strength: 2%
Dosage Form/Route: SUSPENSION;ORAL
Application: N208143 | Product #002
Applicant: BRACCO DIAGNOSTICS INC
Approved: Jan 15, 2016 | RLD: Yes | RS: Yes | Type: RX